FAERS Safety Report 4733277-3 (Version None)
Quarter: 2005Q3

REPORT INFORMATION
  Report Type: 
  Country: None (occurrence: None)
  Receive Date: 20050803
  Receipt Date: 20050727
  Transmission Date: 20060218
  Serious: Yes (Other)
  Sender: FDA-Public Use
  Company Number: BR-BRISTOL-MYERS SQUIBB COMPANY-13057500

PATIENT
  Age: 52 Year
  Sex: Female

DRUGS (4)
  1. TEQUIN [Suspect]
     Indication: SINUSITIS
     Route: 048
  2. NASONEX [Concomitant]
  3. PREDSIM [Concomitant]
  4. PANTOPRAZOLE SODIUM [Concomitant]

REACTIONS (4)
  - BLINDNESS [None]
  - BLINDNESS UNILATERAL [None]
  - MACULOPATHY [None]
  - SCOTOMA [None]
